FAERS Safety Report 9928636 (Version 1)
Quarter: 2014Q1

REPORT INFORMATION
  Report Type: Spontaneous
  Country: JP (occurrence: None)
  Receive Date: 20140225
  Receipt Date: 20140225
  Transmission Date: 20141002
  Serious: Yes (Other)
  Sender: FDA-Public Use
  Company Number: B0971093A

PATIENT
  Age: 39 Year
  Sex: Male

DRUGS (5)
  1. LAMIVUDINE [Suspect]
     Indication: ACQUIRED IMMUNODEFICIENCY SYNDROME
  2. ABACAVIR SULPHATE [Suspect]
     Indication: ACQUIRED IMMUNODEFICIENCY SYNDROME
  3. LOPINAVIR + RITONAVIR [Suspect]
     Indication: ACQUIRED IMMUNODEFICIENCY SYNDROME
  4. ATOVAQUONE [Concomitant]
  5. AMPHOTERICIN [Concomitant]

REACTIONS (9)
  - Histiocytosis haematophagic [None]
  - Body temperature increased [None]
  - Alanine aminotransferase increased [None]
  - Aspartate aminotransferase increased [None]
  - Gamma-glutamyltransferase increased [None]
  - Neutropenia [None]
  - Disseminated intravascular coagulation [None]
  - Amoebiasis [None]
  - Immune reconstitution inflammatory syndrome [None]
